FAERS Safety Report 5582611-3 (Version None)
Quarter: 2008Q1

REPORT INFORMATION
  Report Type: 
  Country: None (occurrence: None)
  Receive Date: 20080107
  Receipt Date: 20071227
  Transmission Date: 20080703
  Serious: Yes (Hospitalization)
  Sender: FDA-Public Use
  Company Number: US-JNJFOC-20071200455

PATIENT
  Sex: Female

DRUGS (1)
  1. DURAGESIC-100 [Suspect]
     Indication: PAIN
     Route: 062

REACTIONS (5)
  - COORDINATION ABNORMAL [None]
  - DYSSTASIA [None]
  - LETHARGY [None]
  - MENTAL STATUS CHANGES [None]
  - SPEECH DISORDER [None]
